FAERS Safety Report 7278549-6 (Version None)
Quarter: 2011Q1

REPORT INFORMATION
  Report Type: 
  Country: None (occurrence: None)
  Receive Date: 20110207
  Receipt Date: 20110128
  Transmission Date: 20110831
  Serious: Yes (Death, Hospitalization, Other)
  Sender: FDA-Public Use
  Company Number: PHHY2011FR07426

PATIENT
  Age: 20 Year
  Sex: Female

DRUGS (7)
  1. ISONIAZID [Suspect]
     Indication: PULMONARY TUBERCULOSIS
     Dosage: UNK
  2. OFLOXACIN [Suspect]
     Indication: PULMONARY TUBERCULOSIS
  3. RIFAMPICIN [Suspect]
     Indication: PULMONARY TUBERCULOSIS
  4. PREDNISOLONE [Concomitant]
     Dosage: UNK
  5. TACROLIMUS [Concomitant]
  6. PYRAZINAMIDE [Suspect]
     Indication: PULMONARY TUBERCULOSIS
     Dosage: UNK
  7. ETHAMBUTOL HYDROCHLORIDE [Suspect]
     Indication: PULMONARY TUBERCULOSIS
     Dosage: UNK

REACTIONS (6)
  - HEPATIC ENCEPHALOPATHY [None]
  - SEPSIS [None]
  - JAUNDICE [None]
  - SHOCK HAEMORRHAGIC [None]
  - LIVER TRANSPLANT REJECTION [None]
  - ACUTE HEPATIC FAILURE [None]
